FAERS Safety Report 7661198 (Version 3)
Quarter: 2012Q4

REPORT INFORMATION
  Report Type: 
  Country: US (occurrence: US)
  Receive Date: 20101109
  Receipt Date: 20120831
  Transmission Date: 20130627
  Serious: Yes (Hospitalization)
  Sender: FDA-Public Use
  Company Number: US-BAYER-201039555NA

PATIENT
  Age: 27 Year
  Sex: Female

DRUGS (21)
  1. YASMIN [Suspect]
     Indication: CONTRACEPTION
     Dosage: UNK UNK, UNK
     Route: 048
     Dates: start: 200412, end: 200812
  2. YASMIN [Suspect]
     Indication: PREMENSTRUAL SYNDROME
     Dosage: UNK
  3. YASMIN [Suspect]
     Indication: CONTRACEPTION
     Dosage: UNK
  4. OCELLA [Suspect]
     Indication: CONTRACEPTION
     Dosage: UNK
     Route: 048
     Dates: start: 200412, end: 200812
  5. OCELLA [Suspect]
     Indication: PREMENSTRUAL SYNDROME
     Dosage: UNK
  6. PREDNISONE [Concomitant]
     Dosage: 10 mg, UNK
     Dates: start: 20080901
  7. METRONIDAZOLE [Concomitant]
     Dosage: 500 mg, UNK
     Dates: start: 20080906
  8. CIPROFLOXACIN [Concomitant]
     Dosage: 500 mg, UNK
     Dates: start: 20080906
  9. HYDROCODONE [Concomitant]
     Dosage: 5-500mg, UNK
     Dates: start: 20080906
  10. HALFLYTELY-BISACODYL BOWEL [Concomitant]
     Dosage: UNK
     Dates: start: 20081001
  11. AZATHIOPRINE [Concomitant]
     Dosage: 50 mg, UNK
     Dates: start: 20081001
  12. AZITHROMYCIN [Concomitant]
     Dosage: 250 mg, UNK
     Dates: start: 20081030
  13. GUAIFENEX [Concomitant]
     Dosage: UNK
     Dates: start: 20081104
  14. AVELOX [Concomitant]
     Dosage: 400 mg, UNK
     Dates: start: 20081124
  15. ANTIBIOTICS [Concomitant]
     Dosage: UNK
  16. ALBUTEROL [Concomitant]
     Dosage: 2 puffs as needed
     Route: 045
  17. LISINOPRIL [Concomitant]
     Dosage: 10 mg, Daily
     Route: 048
  18. XANAX [Concomitant]
     Dosage: occasional prn (interpreted as needed)
  19. IMODIUM [Concomitant]
     Dosage: UNK
  20. DILAUDID [Concomitant]
     Dosage: UNK
  21. ZOFRAN [Concomitant]
     Dosage: UNK

REACTIONS (1)
  - Transient ischaemic attack [Unknown]
